FAERS Safety Report 6203350-1 (Version None)
Quarter: 2009Q2

REPORT INFORMATION
  Report Type: 
  Country: None (occurrence: None)
  Receive Date: 20090522
  Receipt Date: 20090522
  Transmission Date: 20091009
  Serious: Yes (Other)
  Sender: FDA-Public Use
  Company Number: None

PATIENT
  Age: 50 Year
  Sex: Female
  Weight: 54.5 kg

DRUGS (2)
  1. LORAZEPAM [Suspect]
     Dosage: 1 MG 3X DAY ORAL
     Route: 048
     Dates: start: 20090107
  2. LORAZEPAM [Suspect]
     Dosage: 1 MG 3X DAY ORAL
     Route: 048
     Dates: start: 20090516

REACTIONS (2)
  - DRUG INEFFECTIVE [None]
  - PRODUCT QUALITY ISSUE [None]
